FAERS Safety Report 7783370-6 (Version None)
Quarter: 2011Q3

REPORT INFORMATION
  Report Type: 
  Country: None (occurrence: None)
  Receive Date: 20110928
  Receipt Date: 20110629
  Transmission Date: 20111222
  Serious: Yes (Death, Other)
  Sender: FDA-Public Use
  Company Number: RO-UCBSA-040106

PATIENT

DRUGS (1)
  1. NEUPRO [Suspect]
     Route: 065

REACTIONS (3)
  - FOETAL DISTRESS SYNDROME [None]
  - FOETAL GROWTH RESTRICTION [None]
  - MATERNAL EXPOSURE DURING PREGNANCY [None]
